FAERS Safety Report 16016070 (Version 2)
Quarter: 2019Q1

REPORT INFORMATION
  Report Type: Report from Study
  Country: US (occurrence: US)
  Receive Date: 20190228
  Receipt Date: 20190304
  Transmission Date: 20190418
  Serious: Yes (Other)
  Sender: FDA-Public Use
  Company Number: US-AMGEN INC.-USASL2019025049

PATIENT
  Age: 59 Year
  Sex: Male
  Weight: 58.96 kg

DRUGS (4)
  1. CAFFEINE. [Suspect]
     Active Substance: CAFFEINE
     Indication: MIGRAINE
     Dosage: 200 MG, UNK, TWO TIMES
     Route: 048
  2. ADDERALL [Concomitant]
     Active Substance: AMPHETAMINE ASPARTATE\AMPHETAMINE SULFATE\DEXTROAMPHETAMINE SACCHARATE\DEXTROAMPHETAMINE SULFATE
     Dosage: UNK
     Route: 065
  3. AIMOVIG [Suspect]
     Active Substance: ERENUMAB-AOOE
     Indication: PRODUCT USED FOR UNKNOWN INDICATION
     Dosage: UNK UNK, QMO
     Route: 065
     Dates: start: 20180806, end: 20190211
  4. OXYCODONE [Concomitant]
     Active Substance: OXYCODONE
     Indication: MIGRAINE
     Dosage: 10 MG, UNK, TWO-THREE TIMES
     Route: 065

REACTIONS (4)
  - Gastritis erosive [Unknown]
  - Duodenal ulcer [Unknown]
  - Gastrointestinal disorder [Recovered/Resolved]
  - Gastrooesophageal reflux disease [Unknown]
